FAERS Safety Report 18518489 (Version 1)
Quarter: 2020Q4

REPORT INFORMATION
  Report Type: Spontaneous
  Country: CA (occurrence: CA)
  Receive Date: 20201118
  Receipt Date: 20201118
  Transmission Date: 20210114
  Serious: Yes (Death, Congenital Anomaly, Other)
  Sender: FDA-Public Use
  Company Number: CA-GLAXOSMITHKLINE-CA2020GSK227595

PATIENT
  Sex: Male

DRUGS (2)
  1. AVANDIA [Suspect]
     Active Substance: ROSIGLITAZONE MALEATE
     Indication: DIABETES MELLITUS
     Dosage: 4 MG, QD
     Route: 048
     Dates: start: 20030307, end: 200705
  2. AVANDIA [Suspect]
     Active Substance: ROSIGLITAZONE MALEATE
     Dosage: 8 MG, QD
     Route: 048
     Dates: start: 20040309, end: 20070211

REACTIONS (8)
  - Hypertensive cardiomyopathy [Fatal]
  - Myocardial infarction [Unknown]
  - Left ventricular hypertrophy [Unknown]
  - Hypertensive heart disease [Unknown]
  - Diastolic dysfunction [Unknown]
  - Heart disease congenital [Unknown]
  - Cardiac disorder [Unknown]
  - Cardiac arrest [Fatal]
